FAERS Safety Report 12642795 (Version 1)
Quarter: 2016Q3

REPORT INFORMATION
  Report Type: Spontaneous
  Country: US (occurrence: US)
  Receive Date: 20160811
  Receipt Date: 20160811
  Transmission Date: 20161109
  Serious: No
  Sender: FDA-Public Use
  Company Number: US-JNJFOC-20160713414

PATIENT
  Sex: Male

DRUGS (2)
  1. PEPCID AC MAXIMUM STRENGTH [Suspect]
     Active Substance: FAMOTIDINE
     Route: 048
  2. PEPCID AC MAXIMUM STRENGTH [Suspect]
     Active Substance: FAMOTIDINE
     Indication: DYSPEPSIA
     Dosage: 13-JUL-2016, 1 CAPLET ONCE,??14-JUL-2016, 1 CAPLET??A TOTAL OF 2 CAPLETS
     Route: 048
     Dates: start: 20160713

REACTIONS (1)
  - Drug effect decreased [Unknown]

NARRATIVE: CASE EVENT DATE: 20160714
